FAERS Safety Report 9765165 (Version 2)
Quarter: 2013Q4

REPORT INFORMATION
  Report Type: Spontaneous
  Country: DE (occurrence: DE)
  Receive Date: 20131217
  Receipt Date: 20131217
  Transmission Date: 20140711
  Serious: Yes (Hospitalization, Other)
  Sender: FDA-Public Use
  Company Number: DE-BEH-2013039341

PATIENT
  Age: 75 Year
  Sex: Male
  Weight: 78 kg

DRUGS (13)
  1. PRIVIGEN [Suspect]
     Dosage: 0.5G/KG/KG
     Route: 042
     Dates: start: 20131204, end: 20131204
  2. PRIVIGEN [Suspect]
     Indication: CHRONIC INFLAMMATORY DEMYELINATING POLYRADICULONEUROPATHY
     Route: 042
     Dates: start: 201307, end: 201307
  3. PRIVIGEN [Suspect]
     Route: 042
     Dates: start: 201308, end: 201308
  4. PRIVIGEN [Suspect]
     Route: 042
     Dates: start: 201310, end: 201310
  5. RAMIPRIL [Concomitant]
  6. VALORON [Concomitant]
     Dosage: VALORON N RETARD 100/8 MG
  7. PANTOZOL [Concomitant]
  8. ASS [Concomitant]
  9. EUTHYROX [Concomitant]
  10. ALFUZOSIN [Concomitant]
  11. EMSELEX [Concomitant]
  12. ALLOPURINOL [Concomitant]
  13. LOCOL [Concomitant]

REACTIONS (5)
  - Pyrexia [Recovered/Resolved]
  - Chills [Recovered/Resolved]
  - Nausea [Recovered/Resolved]
  - Streptococcus test positive [Unknown]
  - Streptococcus test positive [Unknown]
